FAERS Safety Report 20980694 (Version 1)
Quarter: 2022Q2

REPORT INFORMATION
  Report Type: Spontaneous
  Country: US (occurrence: US)
  Receive Date: 20220620
  Receipt Date: 20220620
  Transmission Date: 20220720
  Serious: No
  Sender: FDA-Public Use
  Company Number: US-BRISTOL-MYERS SQUIBB COMPANY-2022-060680

PATIENT
  Age: 65 Year
  Sex: Male

DRUGS (1)
  1. REVLIMID [Suspect]
     Active Substance: LENALIDOMIDE
     Indication: Plasma cell myeloma
     Dosage: 2 CAPSULES (10 MILLIGRAM) EVERYDAY ON DAYS 1-14 OF 21 DAY CYCLE
     Route: 048

REACTIONS (2)
  - Pruritus [Unknown]
  - Intentional product use issue [Unknown]
